FAERS Safety Report 17569811 (Version 1)
Quarter: 2020Q1

REPORT INFORMATION
  Report Type: Spontaneous
  Country: US (occurrence: US)
  Receive Date: 20200323
  Receipt Date: 20200323
  Transmission Date: 20200409
  Serious: No
  Sender: FDA-Public Use
  Company Number: US-AUROBINDO-AUR-APL-2020-002336

PATIENT
  Age: 34 Year
  Sex: Female

DRUGS (2)
  1. OMEPRAZOLE 20 MG DELAYED RELEASE TABLETS [Suspect]
     Active Substance: OMEPRAZOLE
     Indication: PRODUCT USED FOR UNKNOWN INDICATION
     Dosage: UNK
     Route: 065
  2. LEVOTHYROXINE. [Suspect]
     Active Substance: LEVOTHYROXINE
     Indication: PRODUCT USED FOR UNKNOWN INDICATION
     Dosage: UNK
     Route: 065

REACTIONS (6)
  - Drug ineffective [Unknown]
  - Diarrhoea [Unknown]
  - Muscle spasms [Unknown]
  - Flatulence [Unknown]
  - Oropharyngeal pain [Unknown]
  - Paraesthesia oral [Unknown]
